FAERS Safety Report 22067602 (Version 2)
Quarter: 2023Q1

REPORT INFORMATION
  Report Type: Spontaneous
  Country: US (occurrence: US)
  Receive Date: 20230307
  Receipt Date: 20230309
  Transmission Date: 20230417
  Serious: Yes (Other)
  Sender: FDA-Public Use
  Company Number: US-BRISTOL-MYERS SQUIBB COMPANY-2023-031331

PATIENT
  Age: 73 Year
  Sex: Male
  Weight: 78.8 kg

DRUGS (5)
  1. POMALYST [Suspect]
     Active Substance: POMALIDOMIDE
     Indication: Plasma cell myeloma
     Dosage: FREQUENCY: EVERYDAY DAYS 1-21 OF A 28 DAY CYCLE
     Route: 048
     Dates: start: 20201201, end: 20230104
  2. POMALYST [Suspect]
     Active Substance: POMALIDOMIDE
     Dosage: FREQUENCY: EVERYDAY DAYS 1-21 OF A 28 DAY CYCLE
     Route: 048
     Dates: start: 20230223
  3. POMALYST [Suspect]
     Active Substance: POMALIDOMIDE
     Dosage: 21
     Dates: start: 20201123
  4. DEXAMETHASONE [Suspect]
     Active Substance: DEXAMETHASONE
     Indication: Product used for unknown indication
     Route: 042
  5. CARFILZOMIB [Suspect]
     Active Substance: CARFILZOMIB
     Indication: Product used for unknown indication
     Route: 042

REACTIONS (3)
  - Osteomyelitis [Unknown]
  - Osteonecrosis of jaw [Unknown]
  - Plasma cell myeloma [Unknown]

NARRATIVE: CASE EVENT DATE: 20230113
